FAERS Safety Report 17066971 (Version 7)
Quarter: 2023Q2

REPORT INFORMATION
  Report Type: Report from Study
  Country: DE (occurrence: DE)
  Receive Date: 20191122
  Receipt Date: 20230408
  Transmission Date: 20230722
  Serious: Yes (Hospitalization, Other)
  Sender: FDA-Public Use
  Company Number: None

PATIENT
  Age: 65 Year
  Sex: Female
  Weight: 89 kg

DRUGS (11)
  1. COSENTYX [Suspect]
     Active Substance: SECUKINUMAB
     Indication: Ankylosing spondylitis
     Dosage: 150 MG, QMO
     Route: 058
     Dates: start: 20180130, end: 20180226
  2. COSENTYX [Suspect]
     Active Substance: SECUKINUMAB
     Dosage: 150 MG, QMO
     Route: 058
     Dates: start: 20180227
  3. MOXONIDINE [Suspect]
     Active Substance: MOXONIDINE
     Indication: Product used for unknown indication
     Dosage: 0.2 MG
     Route: 048
     Dates: start: 202101, end: 202101
  4. MINOXIDIL [Suspect]
     Active Substance: MINOXIDIL
     Indication: Product used for unknown indication
     Dosage: 2.5 MG, UNKNOWN
     Route: 048
     Dates: start: 202102, end: 202103
  5. SPIRONOLACTONE [Concomitant]
     Active Substance: SPIRONOLACTONE
     Indication: Product used for unknown indication
     Dosage: 25 MG, QD
     Route: 065
     Dates: start: 20190926
  6. SPIRONOLACTONE [Concomitant]
     Active Substance: SPIRONOLACTONE
     Dosage: 50 MG
     Route: 065
     Dates: start: 20191106
  7. TRIMIPRAMINE [Concomitant]
     Active Substance: TRIMIPRAMINE
     Indication: Depressed mood
     Dosage: 40 MG
     Route: 065
     Dates: start: 2010
  8. OMEPRAZOLE [Concomitant]
     Active Substance: OMEPRAZOLE
     Indication: Gastrooesophageal reflux disease
     Dosage: 20 MG, UNKNOWN
     Route: 065
  9. NAPROXEN [Concomitant]
     Active Substance: NAPROXEN
     Indication: Ankylosing spondylitis
     Dosage: 500 MG, PRN
     Route: 065
     Dates: start: 2006
  10. JODETTEN [Concomitant]
     Indication: Goitre
     Dosage: 1.529 MG, QD
     Route: 065
  11. ASPIRIN [Concomitant]
     Active Substance: ASPIRIN
     Indication: Transient ischaemic attack
     Dosage: 100 MG, UNKNOWN
     Route: 065
     Dates: start: 1999

REACTIONS (33)
  - Hypertensive crisis [Unknown]
  - Osteoarthritis [Recovering/Resolving]
  - Arthralgia [Recovered/Resolved with Sequelae]
  - Hypertension [Recovered/Resolved]
  - Psoriatic arthropathy [Unknown]
  - Renal failure [Recovering/Resolving]
  - Nasopharyngitis [Recovered/Resolved]
  - Headache [Unknown]
  - Hepatic steatosis [Unknown]
  - Transaminases increased [Unknown]
  - Psoriasis [Unknown]
  - Back pain [Unknown]
  - Cardiac disorder [Unknown]
  - Abdominal discomfort [Unknown]
  - Palpitations [Unknown]
  - Heart rate abnormal [Unknown]
  - Supraventricular extrasystoles [Unknown]
  - Ventricular extrasystoles [Unknown]
  - Hypertrophy [Unknown]
  - Respiratory disorder [Unknown]
  - Rheumatic disorder [Unknown]
  - Scapholunate dissociation [Unknown]
  - Swelling [Unknown]
  - Skin irritation [Unknown]
  - Soft tissue swelling [Unknown]
  - Scar [Unknown]
  - Glomerular filtration rate abnormal [Unknown]
  - Cardiac stress test [Unknown]
  - Abdominal pain [Unknown]
  - Nasal congestion [Recovered/Resolved]
  - Procedural pain [Unknown]
  - Periorbital swelling [Recovered/Resolved]
  - Dizziness [Recovered/Resolved]

NARRATIVE: CASE EVENT DATE: 20180601
